FAERS Safety Report 11753328 (Version 1)
Quarter: 2015Q4

REPORT INFORMATION
  Report Type: Spontaneous
  Country: GB (occurrence: GB)
  Receive Date: 20151119
  Receipt Date: 20151119
  Transmission Date: 20160304
  Serious: Yes (Hospitalization, Other)
  Sender: FDA-Public Use
  Company Number: GB-TEVA-608110ACC

PATIENT
  Age: 54 Year
  Sex: Female
  Weight: 59 kg

DRUGS (10)
  1. VITAMIN B SUBSTANCES [Concomitant]
     Dosage: 1 DOSAGE FORMS DAILY;
     Dates: start: 20151026
  2. THIAMINE. [Concomitant]
     Active Substance: THIAMINE
     Dosage: 3 DOSAGE FORMS DAILY;
     Dates: start: 20151026
  3. MESALAZINE [Concomitant]
     Active Substance: MESALAMINE
     Dosage: 4 DOSAGE FORMS DAILY; 4 DOSAGE FORMS, TWO SACHETS TWICE DAILY
     Dates: start: 20151009, end: 20151010
  4. ZOMORPH [Concomitant]
     Active Substance: MORPHINE SULFATE
     Dates: start: 20150701, end: 20151026
  5. NUTRIZYM [Concomitant]
     Dosage: 9 DOSAGE FORMS DAILY; 9 DOSAGE FORMS, WITH EACH MAIN MEAL
     Dates: start: 20151026
  6. HYOSCINE BUTYLBROMIDE [Concomitant]
     Active Substance: BUTYLSCOPOLAMINE
     Dosage: 8 DOSAGE FORMS DAILY;
     Dates: start: 20150813, end: 20150827
  7. GABAPENTIN. [Suspect]
     Active Substance: GABAPENTIN
     Dates: start: 20151026
  8. CODEINE PHOSPHATE [Concomitant]
     Active Substance: CODEINE PHOSPHATE
     Dosage: 4 DOSAGE FORMS DAILY;
     Dates: start: 20150828, end: 20150911
  9. CREON [Concomitant]
     Active Substance: PANCRELIPASE AMYLASE\PANCRELIPASE LIPASE\PANCRELIPASE PROTEASE
     Dosage: 4 DOSAGE FORMS DAILY;
     Dates: start: 20151026
  10. TRAMADOL. [Concomitant]
     Active Substance: TRAMADOL
     Dosage: ONE OR TWO UP TO FOUR TIMES DAILY
     Dates: start: 20150701, end: 20150924

REACTIONS (2)
  - Diarrhoea [Recovering/Resolving]
  - Pancreatic insufficiency [Not Recovered/Not Resolved]

NARRATIVE: CASE EVENT DATE: 20151026
